FAERS Safety Report 4447074-X (Version None)
Quarter: 2004Q3

REPORT INFORMATION
  Report Type: 
  Country: None (occurrence: None)
  Receive Date: 20040813
  Receipt Date: 20040504
  Transmission Date: 20050211
  Serious: No
  Sender: FDA-Public Use
  Company Number: S04-USA-03570-01

PATIENT
  Age: 87 Year
  Sex: Female

DRUGS (11)
  1. NAMENDA [Suspect]
     Indication: DEMENTIA ALZHEIMER'S TYPE
     Dosage: 5 MG QD PO
     Route: 048
     Dates: start: 20040419, end: 20040425
  2. NAMENDA [Suspect]
     Indication: DEMENTIA ALZHEIMER'S TYPE
     Dosage: 10 MG QD PO
     Route: 048
     Dates: start: 20040426, end: 20040502
  3. NAMENDA [Suspect]
     Indication: DEMENTIA ALZHEIMER'S TYPE
     Dosage: 15 MG QD PO
     Route: 048
     Dates: start: 20040503
  4. ARICEPT [Concomitant]
  5. CELEXA [Concomitant]
  6. RISPERDAL [Concomitant]
  7. AMBIEN [Concomitant]
  8. LASIX [Concomitant]
  9. SYNTHROID [Concomitant]
  10. VERAPAMIL [Concomitant]
  11. MILK OF MAGNESIA TAB [Concomitant]

REACTIONS (4)
  - AGITATION [None]
  - CONSTIPATION [None]
  - CRYING [None]
  - DEPRESSION [None]
